FAERS Safety Report 7884536-7 (Version None)
Quarter: 2011Q4

REPORT INFORMATION
  Report Type: 
  Country: None (occurrence: None)
  Receive Date: 20111102
  Receipt Date: 20111027
  Transmission Date: 20120403
  Serious: Yes (Other)
  Sender: FDA-Public Use
  Company Number: US-PFIZER INC-2011207909

PATIENT
  Sex: Female
  Weight: 73.469 kg

DRUGS (5)
  1. AMLODIPINE [Concomitant]
     Dosage: 5 MG, UNK
  2. SUTENT [Suspect]
     Dosage: 50 MG, 1X/DAY (TAKE 1 CAPSULE BY MOUTH EVERY DAY FOR 28 DAYS ON, THEN 14 DAYS OFF)
     Route: 048
  3. SIMVASTATIN [Concomitant]
     Dosage: 10 MG, 1 DAILY
  4. SUTENT [Suspect]
     Dosage: 50 MG, 1X/DAY, 28 DAYS ON, THEN 14 DAYS OFF
     Route: 048
     Dates: start: 20110815
  5. BENADRYL [Concomitant]
     Dosage: 25 MG, UNK

REACTIONS (1)
  - HAEMATOCHEZIA [None]
